FAERS Safety Report 8567057-8 (Version None)
Quarter: 2012Q3

REPORT INFORMATION
  Report Type: 
  Country: None (occurrence: None)
  Receive Date: 20120730
  Receipt Date: 20120730
  Transmission Date: 20120928
  Serious: Yes (Hospitalization)
  Sender: FDA-Public Use
  Company Number: None

PATIENT
  Age: 42 Year
  Sex: Male
  Weight: 95.5 kg

DRUGS (2)
  1. DIPHENHYDRAMINE HYDROCHLORIDE [Suspect]
     Indication: PRURITUS
     Dosage: 25 MG QID PO
     Route: 048
     Dates: start: 20120131, end: 20120202
  2. DOXYCYCLINE HCL [Suspect]
     Indication: FOLLICULITIS
     Dosage: 100 MG BID PO
     Route: 048
     Dates: start: 20120131, end: 20120202

REACTIONS (2)
  - HEPATITIS [None]
  - RASH [None]
